FAERS Safety Report 17246304 (Version 3)
Quarter: 2022Q2

REPORT INFORMATION
  Report Type: Spontaneous
  Country: US (occurrence: US)
  Receive Date: 20200108
  Receipt Date: 20220526
  Transmission Date: 20220721
  Serious: Yes (Other)
  Sender: FDA-Public Use
  Company Number: US-PFIZER INC-2020003759

PATIENT
  Age: 65 Year
  Sex: Male
  Weight: 81.633 kg

DRUGS (1)
  1. PRISTIQ EXTENDED-RELEASE [Suspect]
     Active Substance: DESVENLAFAXINE SUCCINATE
     Indication: Depression
     Dosage: 50 MG, DAILY
     Route: 048
     Dates: start: 2016

REACTIONS (8)
  - Illness [Unknown]
  - Anxiety [Unknown]
  - Hyperventilation [Unknown]
  - Dyspnoea [Unknown]
  - Malaise [Unknown]
  - Extra dose administered [Unknown]
  - Lethargy [Unknown]
  - Feeling abnormal [Unknown]
